FAERS Safety Report 7241623-4 (Version None)
Quarter: 2011Q1

REPORT INFORMATION
  Report Type: 
  Country: None (occurrence: None)
  Receive Date: 20110120
  Receipt Date: 20110120
  Transmission Date: 20110831
  Serious: Yes (Hospitalization)
  Sender: FDA-Public Use
  Company Number: None

PATIENT
  Age: 77 Year
  Sex: Male
  Weight: 69.4 kg

DRUGS (2)
  1. AMOXICILLIN AND CLAVULANATE POTASSIUM [Suspect]
     Indication: GANGRENE
     Dosage: 1 TAB BID PO
     Route: 048
     Dates: start: 20101217, end: 20101230
  2. AMOXICILLIN AND CLAVULANATE POTASSIUM [Suspect]
     Indication: TOE AMPUTATION
     Dosage: 1 TAB BID PO
     Route: 048
     Dates: start: 20101217, end: 20101230

REACTIONS (1)
  - CLOSTRIDIUM DIFFICILE COLITIS [None]
